FAERS Safety Report 6764570-0 (Version None)
Quarter: 2010Q2

REPORT INFORMATION
  Report Type: 
  Country: None (occurrence: None)
  Receive Date: 20100610
  Receipt Date: 20100304
  Transmission Date: 20101027
  Serious: Yes (Hospitalization)
  Sender: FDA-Public Use
  Company Number: US-TYCO HEALTHCARE/MALLINCKRODT-T201000737

PATIENT

DRUGS (1)
  1. OCTREOSCAN [Suspect]
     Dosage: UNK, SINGLE
     Dates: start: 20100303, end: 20100303

REACTIONS (1)
  - BLOOD PRESSURE INCREASED [None]
